FAERS Safety Report 4408582-0 (Version None)
Quarter: 2004Q3

REPORT INFORMATION
  Report Type: 
  Country: None (occurrence: None)
  Receive Date: 20040723
  Receipt Date: 20040714
  Transmission Date: 20050211
  Serious: Yes (Death, Hospitalization)
  Sender: FDA-Public Use
  Company Number: AU-SHR-04-022407

PATIENT
  Age: 84 Year
  Sex: Female
  Weight: 70 kg

DRUGS (13)
  1. ULTRAVIST 370 (IOPROMIDE) INJECTION [Suspect]
     Indication: ANGIOGRAM
     Dosage: 140 ML, INTRA-ARTERIAL
     Route: 013
     Dates: start: 20040210, end: 20040210
  2. BIVALIRUDIN(BIVALIRUDIN) [Suspect]
     Indication: ACUTE CORONARY SYNDROME
     Dosage: 1.3 ML IV BOLUS  : 4 ML, 1XH, IV DRIP
     Route: 040
     Dates: start: 20040209, end: 20040209
  3. BIVALIRUDIN(BIVALIRUDIN) [Suspect]
     Indication: ACUTE CORONARY SYNDROME
     Dosage: 1.3 ML IV BOLUS  : 4 ML, 1XH, IV DRIP
     Route: 040
     Dates: start: 20040209, end: 20040211
  4. TIROFIBAN(TIROFIBAN) [Suspect]
     Indication: ACUTE CORONARY SYNDROME
     Dosage: SEE IMAGE
     Route: 041
     Dates: start: 20040209, end: 20040209
  5. TIROFIBAN(TIROFIBAN) [Suspect]
     Indication: ACUTE CORONARY SYNDROME
     Dosage: SEE IMAGE
     Route: 041
     Dates: start: 20040209, end: 20040211
  6. ASPIRIN [Concomitant]
  7. ACTRAPID INSULIN NOVO (INSULIN) [Concomitant]
  8. THYROXIN (LEVOTHYROXINE SODIUM) [Concomitant]
  9. SIMVASTATIN [Concomitant]
  10. ALLOPURINOL [Concomitant]
  11. METOPROLOL [Concomitant]
  12. PERINDOPRIL [Concomitant]
  13. ISOSORBIDE DINITRATE [Concomitant]

REACTIONS (11)
  - ACUTE PULMONARY OEDEMA [None]
  - CARDIAC FAILURE [None]
  - DELIRIUM [None]
  - GENERAL PHYSICAL HEALTH DETERIORATION [None]
  - HAEMOGLOBIN DECREASED [None]
  - HYPERKALAEMIA [None]
  - HYPOTENSION [None]
  - ISCHAEMIA [None]
  - POST PROCEDURAL COMPLICATION [None]
  - RENAL FAILURE ACUTE [None]
  - URINARY RETENTION [None]
